FAERS Safety Report 5489155-8 (Version None)
Quarter: 2007Q4

REPORT INFORMATION
  Report Type: 
  Country: None (occurrence: None)
  Receive Date: 20071016
  Receipt Date: 20071003
  Transmission Date: 20080405
  Serious: Yes (Hospitalization)
  Sender: FDA-Public Use
  Company Number: 238425K07USA

PATIENT
  Age: 41 Year
  Sex: Male

DRUGS (10)
  1. REBIF [Suspect]
     Indication: MULTIPLE SCLEROSIS
     Dosage: SEE IMAGE
     Route: 058
     Dates: start: 20070121, end: 20070912
  2. REBIF [Suspect]
     Indication: MULTIPLE SCLEROSIS
     Dosage: SEE IMAGE
     Route: 058
     Dates: start: 20070101
  3. HUMALOG [Concomitant]
  4. ADVAIR (SERETIDE) [Concomitant]
  5. ALBUTEROL (SALBUTAMOL /00139501/) [Concomitant]
  6. COREG [Concomitant]
  7. AVAPRO [Concomitant]
  8. LIPITOR [Concomitant]
  9. ZETIA [Concomitant]
  10. PLAVIX (CLOPIDOGRES SULFATE) [Concomitant]

REACTIONS (4)
  - BRONCHITIS [None]
  - CHILLS [None]
  - MYALGIA [None]
  - NASOPHARYNGITIS [None]
